FAERS Safety Report 24350085 (Version 4)
Quarter: 2024Q4

REPORT INFORMATION
  Report Type: Report from Study
  Country: US (occurrence: US)
  Receive Date: 20240923
  Receipt Date: 20241021
  Transmission Date: 20250115
  Serious: Yes (Hospitalization, Other)
  Sender: ROCHE
  Company Number: US-ROCHE-10000048252

PATIENT
  Age: 61 Year
  Sex: Female
  Weight: 73.02 kg

DRUGS (10)
  1. XOLAIR [Suspect]
     Active Substance: OMALIZUMAB
     Indication: Idiopathic urticaria
     Route: 058
     Dates: start: 20210414, end: 20240801
  2. XOLAIR [Suspect]
     Active Substance: OMALIZUMAB
     Dosage: MORE DOSAGE INFORMATION IS 75 MG PREFILLED SYRINGE.
     Route: 058
  3. ASPIRIN [Concomitant]
     Active Substance: ASPIRIN
     Indication: Cerebrovascular accident
     Route: 048
     Dates: start: 20240726
  4. CLOPIDOGREL [Concomitant]
     Active Substance: CLOPIDOGREL BISULFATE
     Indication: Cerebrovascular accident
     Route: 048
     Dates: start: 20240726
  5. ROSUVASTATIN [Concomitant]
     Active Substance: ROSUVASTATIN
     Indication: Cerebrovascular accident
     Route: 048
  6. LORAZEPAM [Concomitant]
     Active Substance: LORAZEPAM
     Indication: Anxiety
     Route: 048
     Dates: start: 20240803
  7. XYZAL ALLERGY 24HR [Concomitant]
     Active Substance: LEVOCETIRIZINE DIHYDROCHLORIDE
  8. HYDROXYZINE HYDROCHLORIDE [Concomitant]
     Active Substance: HYDROXYZINE HYDROCHLORIDE
     Route: 048
  9. MONTELUKAST SODIUM [Concomitant]
     Active Substance: MONTELUKAST SODIUM
     Route: 048
  10. CETIRIZINE HYDROCHLORIDE [Concomitant]
     Active Substance: CETIRIZINE HYDROCHLORIDE
     Dosage: 2-3 TIMES A DAY
     Route: 048
     Dates: start: 20190708

REACTIONS (19)
  - Thrombosis [Recovering/Resolving]
  - Ischaemic stroke [Recovering/Resolving]
  - Urticaria [Unknown]
  - Off label use [Unknown]
  - Anxiety [Unknown]
  - Panic attack [Unknown]
  - Cerebrovascular accident [Unknown]
  - Depression [Unknown]
  - Depressed mood [Unknown]
  - Feeling of despair [Unknown]
  - Hypersomnia [Unknown]
  - Decreased appetite [Unknown]
  - Hyperphagia [Unknown]
  - Feeling abnormal [Unknown]
  - Disturbance in attention [Unknown]
  - Restlessness [Unknown]
  - Ill-defined disorder [Unknown]
  - Anxiety [Unknown]
  - Ill-defined disorder [Unknown]

NARRATIVE: CASE EVENT DATE: 20240801
